FAERS Safety Report 18555455 (Version 5)
Quarter: 2021Q1

REPORT INFORMATION
  Report Type: Report from Study
  Country: US (occurrence: US)
  Receive Date: 20201127
  Receipt Date: 20210119
  Transmission Date: 20210419
  Serious: Yes (Disabling, Other)
  Sender: FDA-Public Use
  Company Number: US-TAKEDA-2018TUS024105

PATIENT
  Sex: Female

DRUGS (3)
  1. VEDOLIZUMAB [Suspect]
     Active Substance: VEDOLIZUMAB
     Indication: CROHN^S DISEASE
     Dosage: 300 MILLIGRAM
     Route: 042
  2. VEDOLIZUMAB [Suspect]
     Active Substance: VEDOLIZUMAB
     Dosage: 300 MILLIGRAM, Q4WEEKS
     Route: 042
  3. GABAPENTIN. [Suspect]
     Active Substance: GABAPENTIN
     Indication: PRODUCT USED FOR UNKNOWN INDICATION
     Dosage: UNK
     Route: 065

REACTIONS (19)
  - Inflammation [Unknown]
  - Abdominal pain upper [Unknown]
  - Intestinal resection [Unknown]
  - Insomnia [Unknown]
  - Stress [Unknown]
  - Arthropathy [Unknown]
  - Diarrhoea [Unknown]
  - Fatigue [Unknown]
  - Memory impairment [Unknown]
  - Dysarthria [Unknown]
  - Dysgraphia [Unknown]
  - Crohn^s disease [Unknown]
  - Mental disorder [Unknown]
  - Feeling abnormal [Unknown]
  - Decreased immune responsiveness [Unknown]
  - Pain [Unknown]
  - Slow speech [Unknown]
  - Drug ineffective [Unknown]
  - Off label use [Unknown]
